FAERS Safety Report 4679831-9 (Version None)
Quarter: 2005Q2

REPORT INFORMATION
  Report Type: 
  Country: None (occurrence: None)
  Receive Date: 20050602
  Receipt Date: 20041108
  Transmission Date: 20051028
  Serious: No
  Sender: FDA-Public Use
  Company Number: US-GLAXOSMITHKLINE-A0533058A

PATIENT
  Age: 81 Year
  Sex: Female

DRUGS (3)
  1. AUGMENTIN [Suspect]
     Indication: ILL-DEFINED DISORDER
     Dosage: 1000MG TWICE PER DAY
     Route: 048
     Dates: start: 20041028
  2. CLINDAMYCIN [Concomitant]
  3. ANTIBIOTIC [Concomitant]

REACTIONS (3)
  - DIARRHOEA [None]
  - DYSPHAGIA [None]
  - FOREIGN BODY TRAUMA [None]
